FAERS Safety Report 11322143 (Version 3)
Quarter: 2015Q3

REPORT INFORMATION
  Report Type: Report from Study
  Country: DE (occurrence: DE)
  Receive Date: 20150729
  Receipt Date: 20150824
  Transmission Date: 20151125
  Serious: Yes (Hospitalization, Other)
  Sender: FDA-Public Use
  Company Number: DE-GILEAD-2015-0164590

PATIENT
  Age: 63 Year
  Sex: Male
  Weight: 90 kg

DRUGS (6)
  1. RIBAVIRIN. [Suspect]
     Active Substance: RIBAVIRIN
     Indication: CHRONIC HEPATITIS C
     Dosage: 1200 MG, QD
     Route: 048
     Dates: start: 20140222, end: 20140515
  2. ISOPTIN [Concomitant]
     Active Substance: VERAPAMIL HYDROCHLORIDE
     Dosage: 80 MG, QD
  3. SOFOSBUVIR [Suspect]
     Active Substance: SOFOSBUVIR
     Indication: CHRONIC HEPATITIS C
     Dosage: 400 MG, QD
     Route: 048
     Dates: start: 20140222, end: 20140515
  4. PEGINTRON [Suspect]
     Active Substance: PEGINTERFERON ALFA-2B
     Indication: CHRONIC HEPATITIS C
     Dosage: 1.5 UG/KG, Q1WK
     Route: 058
     Dates: start: 20140222, end: 20140515
  5. NOVODIGAL                          /00017701/ [Concomitant]
     Dosage: 0.2 MG, QD
  6. MARCUMAR [Concomitant]
     Active Substance: PHENPROCOUMON
     Dosage: 3 MG, QD
     Dates: start: 1998

REACTIONS (1)
  - Transient ischaemic attack [Recovered/Resolved with Sequelae]

NARRATIVE: CASE EVENT DATE: 20140913
